FAERS Safety Report 14689173 (Version 3)
Quarter: 2018Q2

REPORT INFORMATION
  Report Type: Spontaneous
  Country: US (occurrence: US)
  Receive Date: 20180328
  Receipt Date: 20180501
  Transmission Date: 20180711
  Serious: No
  Sender: FDA-Public Use
  Company Number: US-GLAXOSMITHKLINE-US2018051296

PATIENT
  Sex: Female

DRUGS (1)
  1. SUMATRIPTAN (SUMATRIPTAN SUCCINATE) SOLUTION FOR INJECTION IN PRE-FILL [Suspect]
     Active Substance: SUMATRIPTAN

REACTIONS (6)
  - Underdose [Unknown]
  - Product quality issue [Unknown]
  - Headache [Unknown]
  - Migraine [Unknown]
  - Drug dose omission [Unknown]
  - Accidental exposure to product [Unknown]
